FAERS Safety Report 8664732 (Version 2)
Quarter: 2012Q4

REPORT INFORMATION
  Report Type: 
  Country: DK (occurrence: CA)
  Receive Date: 20120713
  Receipt Date: 20121214
  Transmission Date: 20130627
  Serious: Yes (Death)
  Sender: FDA-Public Use
  Company Number: CA-FRI-1000037008

PATIENT
  Age: 75 Year
  Sex: Female

DRUGS (3)
  1. ESCITALOPRAM [Suspect]
     Indication: DEPRESSION
     Dosage: 10 mg
     Route: 048
     Dates: start: 201112
  2. APO-TRIAZIDE [Concomitant]
     Dosage: 25 mg/50 mg
  3. LORAZEPAM [Concomitant]
     Route: 048

REACTIONS (6)
  - Torsade de pointes [Fatal]
  - Myocardial infarction [Fatal]
  - Chest pain [Fatal]
  - Fatigue [Fatal]
  - Hyponatraemia [Fatal]
  - Pain in extremity [Fatal]
